FAERS Safety Report 15373778 (Version 4)
Quarter: 2019Q2

REPORT INFORMATION
  Report Type: Spontaneous
  Country: US (occurrence: US)
  Receive Date: 20180912
  Receipt Date: 20190513
  Transmission Date: 20190711
  Serious: No
  Sender: FDA-Public Use
  Company Number: US-PFIZER INC-2018366168

PATIENT
  Age: 85 Year
  Sex: Male
  Weight: 77.55 kg

DRUGS (3)
  1. LYRICA [Suspect]
     Active Substance: PREGABALIN
     Indication: NEURALGIA
     Dosage: 75 MG, 2X/DAY
     Route: 048
     Dates: start: 201808, end: 201808
  2. LYRICA [Suspect]
     Active Substance: PREGABALIN
     Dosage: 75 MG, DAILY (ONE A DAY)
  3. LYRICA [Suspect]
     Active Substance: PREGABALIN
     Dosage: 0.5 DF, UNK (DIVIDE IT IN HALF/ TAKE THE CAPSULE APART AND TAKE HALF OF THE CONTENTS)

REACTIONS (3)
  - Feeling abnormal [Unknown]
  - Wrong technique in product usage process [Unknown]
  - Dizziness [Recovered/Resolved]

NARRATIVE: CASE EVENT DATE: 2018
